FAERS Safety Report 9026291 (Version 1)
Quarter: 2013Q1

REPORT INFORMATION
  Report Type: Spontaneous
  Country: NL (occurrence: NL)
  Receive Date: 20130123
  Receipt Date: 20130123
  Transmission Date: 20140127
  Serious: Yes (Hospitalization)
  Sender: FDA-Public Use
  Company Number: PHHY2013NL004530

PATIENT
  Sex: Male

DRUGS (2)
  1. ZOMETA [Suspect]
     Indication: PROSTATE CANCER METASTATIC
     Dosage: 4 MG, 1X28 DAYS
     Route: 042
  2. ZOMETA [Suspect]
     Dosage: 4 MG, 1X28 DAYS
     Route: 042
     Dates: start: 20130121

REACTIONS (2)
  - Bone pain [Recovered/Resolved]
  - Gait disturbance [Unknown]
